FAERS Safety Report 9729488 (Version 2)
Quarter: 2013Q4

REPORT INFORMATION
  Report Type: Spontaneous
  Country: US (occurrence: US)
  Receive Date: 20131204
  Receipt Date: 20131204
  Transmission Date: 20140711
  Serious: No
  Sender: FDA-Public Use
  Company Number: US-GILEAD-2009-0021511

PATIENT
  Sex: Male
  Weight: 72.57 kg

DRUGS (13)
  1. LETAIRIS [Suspect]
     Indication: PULMONARY ARTERIAL HYPERTENSION
     Route: 048
     Dates: start: 20090321
  2. FUROSEMIDE [Concomitant]
  3. ASPIRIN [Concomitant]
  4. HCTZ [Concomitant]
  5. NASONEX [Concomitant]
  6. AVAPRO [Concomitant]
  7. ADVAIR [Concomitant]
  8. PROAIR [Concomitant]
  9. BENZONATATE [Concomitant]
  10. MATHOTREXATE [Concomitant]
  11. TOPAMAX [Concomitant]
  12. PREDNISONE [Concomitant]
  13. MULTIVITAMIN [Concomitant]

REACTIONS (1)
  - Nausea [Unknown]
